FAERS Safety Report 12733274 (Version 2)
Quarter: 2017Q1

REPORT INFORMATION
  Report Type: Spontaneous
  Country: JP (occurrence: JP)
  Receive Date: 20160912
  Receipt Date: 20170130
  Transmission Date: 20170428
  Serious: Yes (Hospitalization)
  Sender: FDA-Public Use
  Company Number: JP-CONCORDIA PHARMACEUTICALS INC.-E2B_00007832

PATIENT
  Age: 38 Year
  Sex: Female

DRUGS (11)
  1. NEXIUM [Concomitant]
     Active Substance: ESOMEPRAZOLE MAGNESIUM
     Indication: SYSTEMIC LUPUS ERYTHEMATOSUS
  2. PLAQUENIL [Suspect]
     Active Substance: HYDROXYCHLOROQUINE SULFATE
     Indication: RASH
     Route: 048
     Dates: start: 20160305, end: 20160712
  3. PERSANTIN L [Concomitant]
     Indication: SYSTEMIC LUPUS ERYTHEMATOSUS
  4. LOXOPROFEN [Concomitant]
     Active Substance: LOXOPROFEN
     Indication: SYSTEMIC LUPUS ERYTHEMATOSUS
  5. PLAQUENIL [Suspect]
     Active Substance: HYDROXYCHLOROQUINE SULFATE
     Indication: CUTANEOUS LUPUS ERYTHEMATOSUS
  6. BAKTAR [Concomitant]
     Active Substance: SULFAMETHOXAZOLE\TRIMETHOPRIM
     Indication: SYSTEMIC LUPUS ERYTHEMATOSUS
  7. PLAQUENIL [Suspect]
     Active Substance: HYDROXYCHLOROQUINE SULFATE
     Indication: CUTANEOUS SARCOIDOSIS
  8. PLAQUENIL [Suspect]
     Active Substance: HYDROXYCHLOROQUINE SULFATE
     Indication: NEUROPSYCHIATRIC LUPUS
  9. PLAQUENIL [Suspect]
     Active Substance: HYDROXYCHLOROQUINE SULFATE
     Indication: ALOPECIA
  10. PREDONINE [Concomitant]
     Active Substance: PREDNISOLONE
     Indication: SYSTEMIC LUPUS ERYTHEMATOSUS
  11. NEORAL [Concomitant]
     Active Substance: CYCLOSPORINE
     Indication: SYSTEMIC LUPUS ERYTHEMATOSUS

REACTIONS (7)
  - Cutaneous lupus erythematosus [Recovered/Resolved]
  - Visual field defect [Unknown]
  - Drug ineffective [Unknown]
  - Pruritus [Unknown]
  - Pain [Unknown]
  - Neuropsychiatric lupus [Recovering/Resolving]
  - Hemianopia homonymous [Not Recovered/Not Resolved]

NARRATIVE: CASE EVENT DATE: 2016
